FAERS Safety Report 24544856 (Version 2)
Quarter: 2025Q3

REPORT INFORMATION
  Report Type: Spontaneous
  Country: EU (occurrence: EU)
  Receive Date: 20241024
  Receipt Date: 20250803
  Transmission Date: 20251020
  Serious: Yes (Other)
  Sender: ALEXION PHARMACEUTICALS
  Company Number: EU-002147023-NVSC2024AT196721

PATIENT
  Sex: Female

DRUGS (7)
  1. FULVESTRANT [Suspect]
     Active Substance: FULVESTRANT
     Indication: Hormone receptor positive HER2 negative breast cancer
     Route: 065
  2. FULVESTRANT [Suspect]
     Active Substance: FULVESTRANT
  3. RIBOCICLIB [Suspect]
     Active Substance: RIBOCICLIB
     Indication: Hormone receptor positive HER2 negative breast cancer
     Route: 065
  4. PACLITAXEL [Suspect]
     Active Substance: PACLITAXEL
     Indication: Hormone receptor positive HER2 negative breast cancer
     Route: 065
  5. SACITUZUMAB GOVITECAN [Suspect]
     Active Substance: SACITUZUMAB GOVITECAN
     Indication: Hormone receptor positive HER2 negative breast cancer
     Route: 065
  6. DOXORUBICIN HYDROCHLORIDE [Suspect]
     Active Substance: DOXORUBICIN HYDROCHLORIDE
     Indication: Hormone receptor positive HER2 negative breast cancer
     Route: 065
  7. CAPECITABINE [Suspect]
     Active Substance: CAPECITABINE
     Indication: Hormone receptor positive HER2 negative breast cancer
     Route: 065

REACTIONS (2)
  - Malignant neoplasm progression [Unknown]
  - Hormone receptor positive HER2 negative breast cancer [Unknown]
